FAERS Safety Report 5491446-1 (Version None)
Quarter: 2007Q4

REPORT INFORMATION
  Report Type: 
  Country: None (occurrence: None)
  Receive Date: 20071018
  Receipt Date: 20071009
  Transmission Date: 20080405
  Serious: Yes (Death)
  Sender: FDA-Public Use
  Company Number: 2007US002499

PATIENT
  Age: 35 Year
  Sex: Male

DRUGS (3)
  1. MYCAMINE [Suspect]
     Indication: MUCORMYCOSIS
  2. AMPHOTERICIN B [Suspect]
     Indication: MUCORMYCOSIS
  3. POSACONAZOLE [Suspect]
     Indication: MUCORMYCOSIS

REACTIONS (1)
  - NO THERAPEUTIC RESPONSE [None]
